FAERS Safety Report 15027055 (Version 2)
Quarter: 2023Q2

REPORT INFORMATION
  Report Type: Other
  Country: AU (occurrence: AU)
  Receive Date: 20180619
  Receipt Date: 20230529
  Transmission Date: 20230721
  Serious: Yes (Hospitalization, Other)
  Sender: FDA-Public Use
  Company Number: AU-ASTELLAS-2018US026868

PATIENT
  Age: 45 Year
  Sex: Male

DRUGS (4)
  1. TACROLIMUS [Suspect]
     Active Substance: TACROLIMUS
     Indication: Heart transplant
     Route: 065
  2. MYCOPHENOLATE MOFETIL [Suspect]
     Active Substance: MYCOPHENOLATE MOFETIL
     Indication: Heart transplant
     Route: 065
  3. PREDNISOLONE [Suspect]
     Active Substance: PREDNISOLONE
     Indication: Heart transplant
     Route: 065
  4. PREDNISOLONE [Suspect]
     Active Substance: PREDNISOLONE
     Route: 065

REACTIONS (18)
  - Gallbladder rupture [Recovered/Resolved]
  - Pericardial haemorrhage [Unknown]
  - Haemoperitoneum [Recovered/Resolved]
  - Peripheral ischaemia [Unknown]
  - Peritoneal haematoma [Recovered/Resolved]
  - Pulmonary embolism [Unknown]
  - Gallbladder necrosis [Unknown]
  - Haemobilia [Recovered/Resolved]
  - Atrioventricular block first degree [Unknown]
  - Atrioventricular block second degree [Unknown]
  - Heart transplant rejection [Unknown]
  - Hypotension [Unknown]
  - Cardiac arrest [Unknown]
  - Sepsis [Unknown]
  - Fungal endocarditis [Unknown]
  - Post transplant lymphoproliferative disorder [Unknown]
  - Sepsis [Unknown]
  - Acute kidney injury [Recovered/Resolved]
